FAERS Safety Report 12266073 (Version 1)
Quarter: 2016Q2

REPORT INFORMATION
  Report Type: Report from Study
  Country: US (occurrence: US)
  Receive Date: 20160413
  Receipt Date: 20160413
  Transmission Date: 20160815
  Serious: Yes (Hospitalization)
  Sender: FDA-Public Use
  Company Number: US-BMSGILMSD-2016-0207958

PATIENT
  Age: 34 Year
  Sex: Male

DRUGS (1)
  1. EFAVIRENZ/EMTRICITABINE/TENOFOVIR DISOPROXIL FUMARATE [Suspect]
     Active Substance: EFAVIRENZ\EMTRICITABINE\TENOFOVIR DISOPROXIL FUMARATE
     Indication: HIV INFECTION
     Dosage: 1100 MG, UNK
     Route: 048

REACTIONS (6)
  - Intentional product use issue [Unknown]
  - Nasopharyngitis [Unknown]
  - Malaise [Unknown]
  - Feeling abnormal [Unknown]
  - Fatigue [Unknown]
  - Fear [Unknown]
